FAERS Safety Report 9991549 (Version 1)
Quarter: 2014Q1

REPORT INFORMATION
  Report Type: Spontaneous
  Country: US (occurrence: US)
  Receive Date: 20140310
  Receipt Date: 20140310
  Transmission Date: 20141002
  Serious: Yes (Other)
  Sender: FDA-Public Use
  Company Number: US-PFIZER INC-2014068610

PATIENT
  Sex: Female

DRUGS (5)
  1. LYRICA [Suspect]
     Indication: FIBROMYALGIA
     Dosage: UNK
     Dates: start: 2005
  2. LYRICA [Suspect]
     Indication: NEUROPATHY PERIPHERAL
  3. AMITRIPTYLINE [Concomitant]
     Dosage: UNK
  4. TRAMADOL [Concomitant]
     Indication: FIBROMYALGIA
     Dosage: UNK
  5. NORTRIPTYLINE [Concomitant]
     Dosage: UNK

REACTIONS (2)
  - Breast cancer female [Unknown]
  - Drug ineffective [Unknown]
